FAERS Safety Report 11883900 (Version 2)
Quarter: 2016Q1

REPORT INFORMATION
  Report Type: Report from Study
  Country: BE (occurrence: BE)
  Receive Date: 20160101
  Receipt Date: 20160104
  Transmission Date: 20160526
  Serious: Yes (Hospitalization)
  Sender: FDA-Public Use
  Company Number: BE-ABBVIE-15P-013-1528348-00

PATIENT
  Sex: Male

DRUGS (3)
  1. DUODOPA [Suspect]
     Active Substance: CARBIDOPA\LEVODOPA
     Dosage: DOSES CONTINUOUSLY MONITORED AND ADAPTED.
     Route: 050
     Dates: start: 20110106, end: 20151112
  2. DUODOPA [Suspect]
     Active Substance: CARBIDOPA\LEVODOPA
     Dosage: AM=3ML; CD=3.3ML/H FOR 16HRS; ED=2.8ML; ND=2ML/H FOR 8HRS
     Route: 050
     Dates: start: 20151112
  3. DUODOPA [Suspect]
     Active Substance: CARBIDOPA\LEVODOPA
     Indication: PARKINSON^S DISEASE
     Dosage: AM=8ML; CD=2.9ML/H FOR 16HRS; ED=3ML
     Route: 050
     Dates: start: 20110103, end: 20110106

REACTIONS (2)
  - Fall [Unknown]
  - Pelvic fracture [Unknown]
